FAERS Safety Report 14081609 (Version 1)
Quarter: 2017Q4

REPORT INFORMATION
  Report Type: Spontaneous
  Country: DE (occurrence: DE)
  Receive Date: 20171013
  Receipt Date: 20171013
  Transmission Date: 20180321
  Serious: Yes (Disabling)
  Sender: FDA-Public Use
  Company Number: DE-BAYER-2017-193634

PATIENT
  Age: 79 Year
  Sex: Male

DRUGS (2)
  1. ZYVOXID [Suspect]
     Active Substance: LINEZOLID
  2. MOXIFLOXACIN ORAL [Suspect]
     Active Substance: MOXIFLOXACIN
     Indication: STAPHYLOCOCCAL INFECTION
     Dosage: 400 MG, QD
     Route: 048
     Dates: start: 20060201, end: 20060309

REACTIONS (6)
  - Oedema peripheral [Recovered/Resolved]
  - Hypokinesia [Not Recovered/Not Resolved]
  - Dysgeusia [Not Recovered/Not Resolved]
  - Pain [Not Recovered/Not Resolved]
  - Disturbance in attention [Unknown]
  - Paraesthesia [Not Recovered/Not Resolved]

NARRATIVE: CASE EVENT DATE: 20060222
